FAERS Safety Report 4599730-0 (Version None)
Quarter: 2005Q1

REPORT INFORMATION
  Report Type: 
  Country: None (occurrence: None)
  Receive Date: 20050303
  Receipt Date: 20050218
  Transmission Date: 20050727
  Serious: Yes (Hospitalization)
  Sender: FDA-Public Use
  Company Number: 200415859BCC

PATIENT
  Age: 80 Year
  Sex: Male
  Weight: 89.8122 kg

DRUGS (7)
  1. ALEVE (CAPLET) [Suspect]
     Indication: ARTHRITIS
     Dosage: 440 MG, ONCE, ORAL
     Route: 048
     Dates: start: 20041124
  2. ATENOLOL [Concomitant]
  3. COZAAR [Concomitant]
  4. CAPOTEN [Concomitant]
  5. PROBENECID [Concomitant]
  6. ALLOPURINOL [Concomitant]
  7. AMBIEN [Concomitant]

REACTIONS (7)
  - ANAPHYLACTIC REACTION [None]
  - ATRIOVENTRICULAR BLOCK FIRST DEGREE [None]
  - BLOOD GLUCOSE INCREASED [None]
  - CIRCULATORY COLLAPSE [None]
  - DYSPNOEA [None]
  - QRS AXIS ABNORMAL [None]
  - SINUS BRADYCARDIA [None]
